FAERS Safety Report 14871134 (Version 1)
Quarter: 2018Q2

REPORT INFORMATION
  Report Type: Report from Study
  Country: AU (occurrence: AU)
  Receive Date: 20180509
  Receipt Date: 20180509
  Transmission Date: 20180711
  Serious: Yes (Hospitalization, Other)
  Sender: FDA-Public Use
  Company Number: PHHY2018AU077321

PATIENT
  Sex: Female

DRUGS (1)
  1. COSENTYX [Suspect]
     Active Substance: SECUKINUMAB
     Indication: PSORIASIS
     Dosage: 300 MG, QMO
     Route: 058
     Dates: start: 20171128

REACTIONS (5)
  - Infection [Recovering/Resolving]
  - Vomiting [Unknown]
  - Poisoning [Recovering/Resolving]
  - Erythema [Not Recovered/Not Resolved]
  - Malaise [Unknown]
